FAERS Safety Report 19943128 (Version 1)
Quarter: 2021Q4

REPORT INFORMATION
  Report Type: 
  Country: US (occurrence: US)
  Receive Date: 20211012
  Receipt Date: 20211012
  Transmission Date: 20220303
  Serious: No
  Sender: FDA-Public Use
  Company Number: US-C B FLEET CO INC-202103-US-001029

PATIENT
  Sex: Female

DRUGS (3)
  1. MONISTAT 1 COMBINATION PACK [Suspect]
     Active Substance: MICONAZOLE NITRATE
     Indication: Fungal infection
     Dosage: DOSAGE UNKNOWN
     Route: 067
  2. PREMARIN [Concomitant]
     Active Substance: ESTROGENS, CONJUGATED
  3. AQUAPHOR [Concomitant]
     Active Substance: PETROLATUM

REACTIONS (1)
  - Chemical burn of genitalia [Not Recovered/Not Resolved]
